FAERS Safety Report 4648941-4 (Version None)
Quarter: 2005Q2

REPORT INFORMATION
  Report Type: 
  Country: None (occurrence: None)
  Receive Date: 20050427
  Receipt Date: 20050412
  Transmission Date: 20051028
  Serious: Yes (Other)
  Sender: FDA-Public Use
  Company Number: USA050394571

PATIENT
  Age: 62 Year
  Sex: Male

DRUGS (4)
  1. GEMZAR [Suspect]
     Indication: LUNG SQUAMOUS CELL CARCINOMA STAGE UNSPECIFIED
     Dosage: 1 G/M2 OTHER
     Dates: start: 20050101
  2. CARBOPLATIN [Concomitant]
  3. LIPITOR [Concomitant]
  4. PROCRIT (EPOETIN ALFA) [Concomitant]

REACTIONS (3)
  - BLOOD CREATINE PHOSPHOKINASE INCREASED [None]
  - HAEMOGLOBIN DECREASED [None]
  - PAIN IN EXTREMITY [None]
